FAERS Safety Report 15459535 (Version 1)
Quarter: 2018Q4

REPORT INFORMATION
  Report Type: Spontaneous
  Country: US (occurrence: US)
  Receive Date: 20181003
  Receipt Date: 20181003
  Transmission Date: 20190204
  Serious: Yes (Death, Other)
  Sender: FDA-Public Use
  Company Number: US-MYLANLABS-2018M1070773

PATIENT
  Age: 64 Year
  Sex: Male

DRUGS (7)
  1. OSIMERTINIB. [Suspect]
     Active Substance: OSIMERTINIB
     Indication: LUNG ADENOCARCINOMA
     Route: 065
     Dates: start: 201703, end: 201706
  2. OSIMERTINIB. [Suspect]
     Active Substance: OSIMERTINIB
     Dosage: 80 MG, QD
     Route: 065
     Dates: start: 201708, end: 201802
  3. ERLOTINIB [Suspect]
     Active Substance: ERLOTINIB
     Indication: LUNG ADENOCARCINOMA
     Route: 065
     Dates: start: 201607, end: 201703
  4. CRIZOTINIB [Suspect]
     Active Substance: CRIZOTINIB
     Indication: LUNG ADENOCARCINOMA
     Dosage: LATER REDUCED TO 200MG DAILY
     Route: 065
     Dates: start: 201708
  5. PEMETREXED. [Concomitant]
     Active Substance: PEMETREXED
     Indication: LUNG ADENOCARCINOMA
     Dosage: 3 CYCLES
     Route: 065
     Dates: start: 201706, end: 201708
  6. CRIZOTINIB [Suspect]
     Active Substance: CRIZOTINIB
     Dosage: 200 MG, QD
     Route: 065
     Dates: end: 201802
  7. CARBOPLATIN. [Concomitant]
     Active Substance: CARBOPLATIN
     Indication: LUNG ADENOCARCINOMA
     Dosage: 3 CYCLES
     Route: 065
     Dates: start: 201706, end: 201708

REACTIONS (1)
  - Drug resistance [Unknown]
